FAERS Safety Report 4531146-5 (Version None)
Quarter: 2004Q4

REPORT INFORMATION
  Report Type: 
  Country: None (occurrence: None)
  Receive Date: 20041216
  Receipt Date: 20041203
  Transmission Date: 20050328
  Serious: Yes (Death, Disabling)
  Sender: FDA-Public Use
  Company Number: 2004CG00483

PATIENT
  Age: 66 Year
  Sex: Female
  Weight: 80 kg

DRUGS (7)
  1. ARIMIDEX [Suspect]
     Indication: BREAST CANCER
     Dosage: 1 MG DAILY PO
     Route: 048
     Dates: start: 19971119, end: 20021110
  2. NOLVADEX [Suspect]
     Indication: BREAST CANCER
     Dosage: 20 MG DAILY PO
     Route: 048
     Dates: start: 19971119, end: 20021110
  3. SECTAL [Concomitant]
  4. TEMESTA [Concomitant]
  5. AMAREL [Concomitant]
  6. PROFENID [Concomitant]
  7. PARACETAMOL [Concomitant]

REACTIONS (1)
  - VAGINAL CANCER [None]
